FAERS Safety Report 15371277 (Version 1)
Quarter: 2018Q3

REPORT INFORMATION
  Report Type: Report from Study
  Country: US (occurrence: US)
  Receive Date: 20180911
  Receipt Date: 20180911
  Transmission Date: 20181010
  Serious: Yes (Death, Life-Threatening, Other)
  Sender: FDA-Public Use
  Company Number: US-TEVA-2018-US-952634

PATIENT
  Age: 47 Year
  Sex: Male

DRUGS (3)
  1. OXYCODONE [Suspect]
     Active Substance: OXYCODONE
     Route: 065
  2. ALPRAZOLAM. [Suspect]
     Active Substance: ALPRAZOLAM
     Route: 065
  3. DIAZEPAM. [Suspect]
     Active Substance: DIAZEPAM
     Route: 065

REACTIONS (13)
  - Ventricular arrhythmia [Unknown]
  - Hypotension [Unknown]
  - Ischaemia [Unknown]
  - Toxicity to various agents [Fatal]
  - Metabolic acidosis [Unknown]
  - Coma [Unknown]
  - Heart injury [Unknown]
  - Depressed level of consciousness [Unknown]
  - Bradypnoea [Unknown]
  - Tachycardia [Unknown]
  - Bradycardia [Unknown]
  - Respiratory depression [Unknown]
  - Acute kidney injury [Unknown]
